FAERS Safety Report 6977672-0 (Version None)
Quarter: 2010Q3

REPORT INFORMATION
  Report Type: 
  Country: None (occurrence: None)
  Receive Date: 20100913
  Receipt Date: 20100831
  Transmission Date: 20110219
  Serious: No
  Sender: FDA-Public Use
  Company Number: US-BIOGENIDEC-2010BI023769

PATIENT
  Sex: Female

DRUGS (2)
  1. TYSABRI [Suspect]
     Indication: MULTIPLE SCLEROSIS
     Route: 042
     Dates: start: 20070418, end: 20071016
  2. TYSABRI [Suspect]
     Route: 042
     Dates: start: 20091125

REACTIONS (8)
  - ASTHENIA [None]
  - BLADDER DISORDER [None]
  - BLADDER HYPERTROPHY [None]
  - BLADDER PROLAPSE [None]
  - CONFUSIONAL STATE [None]
  - MEMORY IMPAIRMENT [None]
  - PAIN [None]
  - ROAD TRAFFIC ACCIDENT [None]
